FAERS Safety Report 10595772 (Version 1)
Quarter: 2014Q4

REPORT INFORMATION
  Report Type: Spontaneous
  Country: US (occurrence: US)
  Receive Date: 20141120
  Receipt Date: 20141120
  Transmission Date: 20150529
  Serious: Yes (Other)
  Sender: FDA-Public Use
  Company Number: US-PFIZER INC-2014317176

PATIENT
  Sex: Female

DRUGS (1)
  1. DEPO-PROVERA [Suspect]
     Active Substance: MEDROXYPROGESTERONE ACETATE
     Indication: SEIZURE
     Dosage: UNK
     Dates: start: 20141020

REACTIONS (3)
  - Seizure [Unknown]
  - Product use issue [Unknown]
  - Disease progression [Unknown]

NARRATIVE: CASE EVENT DATE: 2014
